FAERS Safety Report 9696898 (Version 2)
Quarter: 2013Q4

REPORT INFORMATION
  Report Type: Spontaneous
  Country: US (occurrence: US)
  Receive Date: 20131119
  Receipt Date: 20131119
  Transmission Date: 20140711
  Serious: No
  Sender: FDA-Public Use
  Company Number: US-GILEAD-2007-0013417

PATIENT
  Sex: Female

DRUGS (3)
  1. LETAIRIS [Suspect]
     Indication: PULMONARY ARTERIAL HYPERTENSION
     Dates: start: 20070904
  2. VENTAVIS [Suspect]
     Dates: start: 200701
  3. VITAMINS [Concomitant]

REACTIONS (4)
  - Chills [Unknown]
  - Vision blurred [Unknown]
  - Heart rate irregular [Unknown]
  - Headache [Unknown]
